FAERS Safety Report 11717275 (Version 1)
Quarter: 2015Q4

REPORT INFORMATION
  Report Type: Spontaneous
  Country: US (occurrence: US)
  Receive Date: 20151109
  Receipt Date: 20151109
  Transmission Date: 20160304
  Serious: No
  Sender: FDA-Public Use
  Company Number: US-009507513-1510USA006900

PATIENT
  Age: 32 Year
  Sex: Female
  Weight: 79.37 kg

DRUGS (1)
  1. IMPLANON [Suspect]
     Active Substance: ETONOGESTREL
     Indication: CONTRACEPTION
     Dosage: 1 ROD / 3 YEARS; LEFT ARM
     Route: 059
     Dates: start: 20120925

REACTIONS (7)
  - Metrorrhagia [Unknown]
  - Chest discomfort [Unknown]
  - Nausea [Unknown]
  - Back pain [Unknown]
  - Incorrect drug administration duration [Unknown]
  - Dizziness [Unknown]
  - Metrorrhagia [Unknown]

NARRATIVE: CASE EVENT DATE: 20150925
